FAERS Safety Report 17233067 (Version 1)
Quarter: 2020Q1

REPORT INFORMATION
  Report Type: Spontaneous
  Country: IT (occurrence: IT)
  Receive Date: 20200104
  Receipt Date: 20200104
  Transmission Date: 20200409
  Serious: Yes (Other)
  Sender: FDA-Public Use
  Company Number: IT-TEVA-2019-IT-1152102

PATIENT
  Age: 93 Year
  Sex: Female

DRUGS (9)
  1. LIPONORM [Concomitant]
     Active Substance: ATORVASTATIN
  2. DIBASE [Concomitant]
     Active Substance: CHOLECALCIFEROL
  3. HYDROCHLOROTHIAZIDE. [Suspect]
     Active Substance: HYDROCHLOROTHIAZIDE
     Indication: HYPERTENSION
     Dosage: 12.5MG PER DAY
     Route: 048
  4. LUVION (CANRENOIC ACID) [Suspect]
     Active Substance: CANRENOIC ACID
     Indication: CARDIAC FAILURE
     Dosage: 50MG PER DAY
     Route: 048
  5. FUROSEMIDE. [Suspect]
     Active Substance: FUROSEMIDE
     Indication: CARDIAC FAILURE
     Dosage: 25MG PER DAY
     Route: 048
  6. BLOPRESS [Suspect]
     Active Substance: CANDESARTAN CILEXETIL
     Indication: HYPERTENSION
     Dosage: 16MG PER DAY
     Route: 048
  7. EUTIROX [Concomitant]
     Active Substance: LEVOTHYROXINE SODIUM
  8. EPINITRIL [Concomitant]
     Active Substance: NITROGLYCERIN
  9. CARDIOASPIRIN [Concomitant]
     Active Substance: ASPIRIN

REACTIONS (3)
  - Blood sodium decreased [Recovering/Resolving]
  - Renal failure [Recovering/Resolving]
  - Hyperkalaemia [Recovering/Resolving]

NARRATIVE: CASE EVENT DATE: 20191107
